FAERS Safety Report 25285923 (Version 1)
Quarter: 2025Q2

REPORT INFORMATION
  Report Type: Spontaneous
  Country: GB (occurrence: GB)
  Receive Date: 20250509
  Receipt Date: 20250509
  Transmission Date: 20250717
  Serious: Yes (Other)
  Sender: NOVO NORDISK
  Company Number: GB-MHRA-35404214

PATIENT
  Age: 55 Year
  Sex: Female
  Weight: 102 kg

DRUGS (2)
  1. SPIKEVAX [Concomitant]
     Active Substance: CX-046684
     Route: 030
  2. RYBELSUS [Suspect]
     Active Substance: SEMAGLUTIDE
     Indication: Product used for unknown indication
     Dosage: TAKE ONE DAILY - TO BE TAKEN ON AN EMPTY STOMACH. TO TAKE 30 MINUTES BEFORE ALL MEDICATIONS AD FOODS
     Dates: start: 20241212

REACTIONS (2)
  - Liver function test abnormal [Unknown]
  - Gastrointestinal disorder [Unknown]
